FAERS Safety Report 5897038-4 (Version None)
Quarter: 2008Q3

REPORT INFORMATION
  Report Type: 
  Country: None (occurrence: None)
  Receive Date: 20080923
  Receipt Date: 20080913
  Transmission Date: 20090109
  Serious: Yes (Hospitalization)
  Sender: FDA-Public Use
  Company Number: CERZ-1000362

PATIENT
  Age: 62 Year
  Sex: Female
  Weight: 71.2 kg

DRUGS (9)
  1. CEREZYME [Suspect]
     Indication: GAUCHER'S DISEASE
     Dosage: 3900 U, Q2W, INTRAVENOUS
     Route: 042
     Dates: start: 19970401
  2. DARVOCET-N (DEXTROPROPDXYPHENE NAPSILATE, PARACETAMOL) [Concomitant]
  3. MULTIVITAMIN [Concomitant]
  4. ZOCOR [Concomitant]
  5. VERAPAMIL [Concomitant]
  6. PAXIL [Concomitant]
  7. TUMS (CALCIUM CARBONATE) [Concomitant]
  8. FOLIC ACID [Concomitant]
  9. LOTENSIN [Concomitant]

REACTIONS (2)
  - INTERVERTEBRAL DISC DEGENERATION [None]
  - THROMBOSIS [None]
